FAERS Safety Report 25332386 (Version 2)
Quarter: 2025Q2

REPORT INFORMATION
  Report Type: Report from Study
  Country: US (occurrence: US)
  Receive Date: 20250519
  Receipt Date: 20250521
  Transmission Date: 20250717
  Serious: Yes (Death)
  Sender: BAUSCH AND LOMB
  Company Number: US-BAUSCH-BL-2025-006410

PATIENT
  Age: 73 Year
  Sex: Male

DRUGS (1)
  1. XIFAXAN [Suspect]
     Active Substance: RIFAXIMIN
     Indication: Hepatic cirrhosis
     Dosage: ALMOST 9 MONTHS
     Route: 048
     Dates: start: 20240725, end: 2025

REACTIONS (2)
  - Hepatic cancer [Fatal]
  - Condition aggravated [Fatal]
